FAERS Safety Report 5889473-5 (Version None)
Quarter: 2008Q3

REPORT INFORMATION
  Report Type: 
  Country: None (occurrence: None)
  Receive Date: 20080910
  Receipt Date: 20080829
  Transmission Date: 20090109
  Serious: Yes (Other)
  Sender: FDA-Public Use
  Company Number: 200813991

PATIENT
  Age: 3 Year
  Sex: Female

DRUGS (2)
  1. VIVAGLOBIN [Suspect]
     Indication: HYPOGAMMAGLOBULINAEMIA
     Dosage: 1.6 G Q1W SC
     Route: 058
  2. VIVAGLOBIN [Suspect]
     Indication: INFECTION
     Dosage: 1.6 G Q1W SC
     Route: 058

REACTIONS (4)
  - FACIAL PALSY [None]
  - FACIAL SPASM [None]
  - TARDIVE DYSKINESIA [None]
  - TREMOR [None]
